FAERS Safety Report 11261773 (Version 3)
Quarter: 2015Q3

REPORT INFORMATION
  Report Type: Spontaneous
  Country: JP (occurrence: JP)
  Receive Date: 20150710
  Receipt Date: 20150812
  Transmission Date: 20151125
  Serious: Yes (Hospitalization)
  Sender: FDA-Public Use
  Company Number: JP-ASTRAZENECA-2015SE64053

PATIENT
  Age: 53 Year
  Sex: Female
  Weight: 52 kg

DRUGS (11)
  1. ONON [Concomitant]
     Active Substance: PRANLUKAST
     Indication: ASTHMA
     Route: 048
     Dates: start: 20150525, end: 20150608
  2. CLARITH [Concomitant]
     Active Substance: CLARITHROMYCIN
     Indication: ASTHMA
     Route: 048
     Dates: start: 20150525
  3. HOKUNALIN:TAPE [Concomitant]
     Active Substance: TULOBUTEROL
     Indication: ASTHMA
     Route: 062
     Dates: start: 20150525, end: 20150608
  4. SODIUM RABEPRAZOLE [Concomitant]
     Active Substance: RABEPRAZOLE SODIUM
     Indication: ADVERSE REACTION
     Route: 048
     Dates: start: 20150525, end: 20150608
  5. PENTCILLIN [Concomitant]
     Active Substance: PIPERACILLIN SODIUM
     Indication: ASTHMA
     Route: 041
     Dates: start: 20150528, end: 20150604
  6. PULMICORT TURBUHALER [Suspect]
     Active Substance: BUDESONIDE
     Indication: ASTHMA
     Route: 055
     Dates: start: 20150608, end: 20150618
  7. PREDONINE [Concomitant]
     Active Substance: PREDNISOLONE\PREDNISOLONE ACETATE\PREDNISOLONE SODIUM SUCCINATE
     Indication: ASTHMA
     Route: 048
     Dates: start: 20150525, end: 20150608
  8. CLARITIN [Concomitant]
     Active Substance: LORATADINE
     Indication: ASTHMA
     Route: 048
     Dates: start: 20150525, end: 20150608
  9. ISODINE [Concomitant]
     Active Substance: POVIDONE-IODINE
     Route: 065
  10. PULMICORT TURBUHALER [Suspect]
     Active Substance: BUDESONIDE
     Indication: ASTHMA
     Route: 055
     Dates: start: 20150525, end: 20150607
  11. SOLU-MEDROL [Concomitant]
     Active Substance: METHYLPREDNISOLONE SODIUM SUCCINATE
     Indication: ASTHMA
     Route: 041
     Dates: start: 20150525

REACTIONS (4)
  - Erythema multiforme [Recovering/Resolving]
  - White blood cell count increased [Recovering/Resolving]
  - Dysgeusia [Recovered/Resolved]
  - Alanine aminotransferase increased [Recovered/Resolved]

NARRATIVE: CASE EVENT DATE: 20150525
